FAERS Safety Report 6657464-2 (Version None)
Quarter: 2010Q1

REPORT INFORMATION
  Report Type: 
  Country: None (occurrence: None)
  Receive Date: 20100330
  Receipt Date: 20100319
  Transmission Date: 20100710
  Serious: Yes (Other)
  Sender: FDA-Public Use
  Company Number: PHHY2010DE06774

PATIENT
  Sex: Female
  Weight: 70 kg

DRUGS (4)
  1. DIOVAN [Suspect]
     Indication: HYPERTENSION
     Dosage: 80 MG DAILY
     Route: 048
     Dates: end: 20091209
  2. DIOVAN [Suspect]
     Dosage: 160 MG DAILY
     Route: 048
     Dates: start: 20091209, end: 20100105
  3. DIOVAN [Suspect]
     Dosage: 80 MG DAILY
     Route: 048
     Dates: start: 20100105
  4. HYDROCHLOROTHIAZIDE [Concomitant]
     Dosage: 12.5 MG, QD
     Route: 048
     Dates: start: 20091216

REACTIONS (2)
  - BLOOD CREATINE PHOSPHOKINASE INCREASED [None]
  - MYALGIA [None]
